FAERS Safety Report 8587277-6 (Version None)
Quarter: 2012Q3

REPORT INFORMATION
  Report Type: 
  Country: None (occurrence: None)
  Receive Date: 20120810
  Receipt Date: 20120403
  Transmission Date: 20120928
  Serious: No
  Sender: FDA-Public Use
  Company Number: US-ASTRAZENECA-2012SE21928

PATIENT
  Age: 68 Year
  Sex: Female
  Weight: 83.9 kg

DRUGS (2)
  1. ENALAPRIL MALEATE [Concomitant]
  2. ARIMIDEX [Suspect]
     Indication: BREAST CANCER
     Route: 048
     Dates: start: 20120315, end: 20120331

REACTIONS (1)
  - STOMATITIS [None]
